FAERS Safety Report 21103233 (Version 1)
Quarter: 2022Q3

REPORT INFORMATION
  Report Type: Spontaneous
  Country: US (occurrence: US)
  Receive Date: 20220720
  Receipt Date: 20220720
  Transmission Date: 20221026
  Serious: Yes (Other)
  Sender: FDA-Public Use
  Company Number: US-SPECGX-T202201563

PATIENT
  Age: 67 Year
  Sex: Male

DRUGS (1)
  1. OXYCODONE [Suspect]
     Active Substance: OXYCODONE
     Indication: Back pain
     Dosage: 30 MILLIGRAM, BID
     Route: 065

REACTIONS (3)
  - Oesophageal spasm [Unknown]
  - Dysphagia [Recovering/Resolving]
  - Constipation [Unknown]
